FAERS Safety Report 7785774-4 (Version None)
Quarter: 2011Q3

REPORT INFORMATION
  Report Type: 
  Country: None (occurrence: None)
  Receive Date: 20110929
  Receipt Date: 20110927
  Transmission Date: 20111222
  Serious: Yes (Death, Hospitalization)
  Sender: FDA-Public Use
  Company Number: JP-BAYER-2011-026716

PATIENT
  Age: 55 Year
  Sex: Male
  Weight: 61 kg

DRUGS (10)
  1. OMEPRAZOLE [Concomitant]
     Dosage: DAILY DOSE 20 MG
     Route: 048
     Dates: start: 20090801
  2. URSAMIC [Concomitant]
     Dosage: DAILY DOSE 600 MG
     Route: 048
     Dates: start: 20090901
  3. NEXAVAR [Suspect]
     Dosage: 400 MG, QD
     Route: 048
     Dates: start: 20100708, end: 20110329
  4. AMINOLEBAN EN [Concomitant]
     Dosage: DAILY DOSE 100 G
     Route: 048
     Dates: start: 20091001
  5. LIVACT [Concomitant]
     Dosage: DAILY DOSE 8.3 G
     Route: 048
     Dates: start: 20091001
  6. NEXAVAR [Suspect]
     Indication: HEPATIC NEOPLASM MALIGNANT
     Dosage: DAILY DOSE 800 MG
     Route: 048
     Dates: start: 20100624, end: 20100101
  7. PETROLATUM SALICYLICUM [Concomitant]
     Dosage: UNK
     Route: 061
     Dates: start: 20101202
  8. AMLODIPINE [Concomitant]
     Dosage: DAILY DOSE 5 MG
     Route: 048
     Dates: start: 20090801
  9. GASMOTIN [Concomitant]
     Dosage: DAILY DOSE 15 MG
     Route: 048
     Dates: start: 20091001
  10. MENTAX [Concomitant]
     Dosage: UNK
     Route: 061
     Dates: start: 20100806

REACTIONS (8)
  - GENERAL PHYSICAL HEALTH DETERIORATION [None]
  - ABDOMINAL PAIN UPPER [None]
  - PALMAR-PLANTAR ERYTHRODYSAESTHESIA SYNDROME [None]
  - PAIN OF SKIN [None]
  - BLOOD PRESSURE INCREASED [None]
  - DIARRHOEA [None]
  - ALOPECIA [None]
  - BLOOD BILIRUBIN INCREASED [None]
